FAERS Safety Report 7564734-2 (Version None)
Quarter: 2011Q2

REPORT INFORMATION
  Report Type: 
  Country: None (occurrence: None)
  Receive Date: 20110622
  Receipt Date: 20101007
  Transmission Date: 20111010
  Serious: Yes (Death)
  Sender: FDA-Public Use
  Company Number: US-MYLANLABS-2010S1018561

PATIENT
  Age: 65 Year
  Sex: Female

DRUGS (6)
  1. CARDIZEM CD [Concomitant]
  2. PROTONIX [Concomitant]
  3. SYMBICORT [Concomitant]
  4. CLOZAPINE [Suspect]
     Route: 048
     Dates: end: 20100101
  5. TRIHEXYPHENIDYL HCL [Concomitant]
  6. LEVOTHYROXINE SODIUM [Concomitant]

REACTIONS (1)
  - DEATH [None]
